FAERS Safety Report 12210598 (Version 3)
Quarter: 2016Q2

REPORT INFORMATION
  Report Type: Spontaneous
  Country: CA (occurrence: CA)
  Receive Date: 20160325
  Receipt Date: 20160608
  Transmission Date: 20160815
  Serious: Yes (Other)
  Sender: FDA-Public Use
  Company Number: CA-GLAXOSMITHKLINE-CA2016GSK041579

PATIENT
  Age: 35 Year
  Sex: Female
  Weight: 83 kg

DRUGS (1)
  1. BENLYSTA [Suspect]
     Active Substance: BELIMUMAB
     Indication: SYSTEMIC LUPUS ERYTHEMATOSUS
     Dosage: 830 MG, Z
     Route: 042
     Dates: start: 20160321

REACTIONS (5)
  - Loss of consciousness [Recovered/Resolved]
  - Cold sweat [Unknown]
  - Dizziness [Unknown]
  - Arthropathy [Recovered/Resolved]
  - Hyperhidrosis [Unknown]

NARRATIVE: CASE EVENT DATE: 20160322
